FAERS Safety Report 15098235 (Version 4)
Quarter: 2019Q3

REPORT INFORMATION
  Report Type: Spontaneous
  Country: JP (occurrence: JP)
  Receive Date: 20180702
  Receipt Date: 20190916
  Transmission Date: 20191004
  Serious: Yes (Life-Threatening, Hospitalization, Other)
  Sender: FDA-Public Use
  Company Number: JP-GILEAD-2018-0347254

PATIENT
  Age: 3 Decade
  Sex: Male

DRUGS (4)
  1. TIVICAY [Suspect]
     Active Substance: DOLUTEGRAVIR SODIUM
     Indication: HIV INFECTION
     Dosage: 1 DF, QD
     Route: 048
     Dates: start: 20170206, end: 20180918
  2. CAFFEINE. [Suspect]
     Active Substance: CAFFEINE
     Indication: SUICIDE ATTEMPT
     Dosage: ABOUT 2 G, SINGLE
     Route: 065
     Dates: start: 20180918, end: 20180918
  3. TRAVELMIN [DIPHENHYDRAMINE HYDROCHLORIDE\DIPROPHYLLINE] [Suspect]
     Active Substance: DIPHENHYDRAMINE HYDROCHLORIDE\DYPHYLLINE
     Indication: SUICIDE ATTEMPT
     Dosage: 78 DOSAGE FORM
     Route: 065
     Dates: start: 20180918
  4. DESCOVY [Suspect]
     Active Substance: EMTRICITABINE\TENOFOVIR ALAFENAMIDE FUMARATE
     Indication: HIV INFECTION
     Dosage: 1 DF, QD
     Route: 048
     Dates: start: 20170628, end: 20180918

REACTIONS (3)
  - Toxicity to various agents [Recovered/Resolved]
  - Altered state of consciousness [Recovering/Resolving]
  - Suicide attempt [Recovered/Resolved]

NARRATIVE: CASE EVENT DATE: 20180429
